FAERS Safety Report 5426144-3 (Version None)
Quarter: 2007Q3

REPORT INFORMATION
  Report Type: 
  Country: None (occurrence: None)
  Receive Date: 20070827
  Receipt Date: 20070817
  Transmission Date: 20080115
  Serious: Yes (Death)
  Sender: FDA-Public Use
  Company Number: JP-ELI_LILLY_AND_COMPANY-JP200707007022

PATIENT
  Age: 56 Year
  Sex: Female

DRUGS (9)
  1. ZYPREXA [Suspect]
     Indication: SCHIZOPHRENIA
     Dosage: 20 MG, DAILY (1/D)
     Route: 048
     Dates: start: 20070724
  2. ABILIFY [Concomitant]
     Indication: SCHIZOPHRENIA
     Dosage: 18 MG, DAILY (1/D)
     Route: 048
     Dates: start: 20070725
  3. RISPERDAL [Concomitant]
     Indication: SCHIZOPHRENIA
     Dosage: 12 MG, DAILY (1/D)
     Route: 048
  4. TEGRETOL [Concomitant]
     Indication: SCHIZOPHRENIA
     Dosage: 600 MG, DAILY (1/D)
     Route: 048
     Dates: end: 20070401
  5. TEGRETOL [Concomitant]
     Dosage: 600 MG, DAILY (1/D)
     Route: 048
     Dates: start: 20070724
  6. CHLORPROMAZINE HCL [Concomitant]
     Indication: SCHIZOPHRENIA
     Dosage: 200 MG, DAILY (1/D)
     Route: 048
     Dates: end: 20070401
  7. CHLORPROMAZINE HCL [Concomitant]
     Dosage: 200 MG, DAILY (1/D)
     Route: 048
     Dates: start: 20070724
  8. AKINETON [Concomitant]
     Indication: SCHIZOPHRENIA
     Dosage: 4 MG, DAILY (1/D)
     Route: 048
     Dates: end: 20070401
  9. AKINETON [Concomitant]
     Dosage: 4 MG, DAILY (1/D)
     Route: 048
     Dates: start: 20070724

REACTIONS (1)
  - PULMONARY INFARCTION [None]
